FAERS Safety Report 9721487 (Version 2)
Quarter: 2014Q1

REPORT INFORMATION
  Report Type: Spontaneous
  Country: US (occurrence: US)
  Receive Date: 20131130
  Receipt Date: 20140106
  Transmission Date: 20141002
  Serious: No
  Sender: FDA-Public Use
  Company Number: US-009507513-1311USA011994

PATIENT
  Age: 16 Year
  Sex: Female
  Weight: 129.71 kg

DRUGS (2)
  1. NEXPLANON [Suspect]
     Indication: CONTRACEPTION
     Dosage: 68 MILLIGRAM
     Route: 059
     Dates: start: 20130814, end: 20131126
  2. NEXPLANON [Suspect]
     Dosage: UNK
     Route: 059
     Dates: start: 2013

REACTIONS (5)
  - Pain in extremity [Recovered/Resolved]
  - Implant site pain [Recovering/Resolving]
  - Application site discomfort [Recovering/Resolving]
  - Device kink [Recovering/Resolving]
  - Product quality issue [Unknown]
